FAERS Safety Report 7532880-5 (Version None)
Quarter: 2011Q2

REPORT INFORMATION
  Report Type: 
  Country: None (occurrence: None)
  Receive Date: 20110608
  Receipt Date: 20110603
  Transmission Date: 20111010
  Serious: Yes (Other)
  Sender: FDA-Public Use
  Company Number: US-PFIZER INC-2011062836

PATIENT
  Sex: Male

DRUGS (2)
  1. RITALIN [Concomitant]
     Indication: NARCOLEPSY
     Dosage: UNK
     Dates: start: 20080101, end: 20100101
  2. CHANTIX [Suspect]
     Indication: SMOKING CESSATION THERAPY
     Dosage: STARTING MONTH PACKS
     Dates: start: 20091001, end: 20091201

REACTIONS (4)
  - DEPRESSION [None]
  - ANXIETY [None]
  - AGGRESSION [None]
  - COGNITIVE DISORDER [None]
